FAERS Safety Report 8061940-8 (Version None)
Quarter: 2012Q1

REPORT INFORMATION
  Report Type: 
  Country: None (occurrence: None)
  Receive Date: 20120117
  Receipt Date: 20120109
  Transmission Date: 20120608
  Serious: Yes (Disabling, Other)
  Sender: FDA-Public Use
  Company Number: 2011MA001062

PATIENT

DRUGS (45)
  1. AZATHIOPRINE [Concomitant]
  2. VIAGRA [Concomitant]
  3. OYST-CAL [Concomitant]
  4. PREDNISONE TAB [Concomitant]
  5. GEMFIBROZIL [Concomitant]
  6. FLUCONAZOLE [Concomitant]
  7. ZOCOR [Concomitant]
  8. TOPROL-XL [Concomitant]
  9. VALCYTE [Concomitant]
  10. LIPITOR [Concomitant]
  11. CLONIDINE [Concomitant]
  12. EPOGEN [Concomitant]
  13. NEXIUM [Concomitant]
  14. PROGRAF [Concomitant]
  15. VITAMIN D [Concomitant]
  16. CIPROFLOXACIN [Concomitant]
  17. RAPAMUNE [Concomitant]
  18. AMOXICILLIN [Concomitant]
  19. LANTUS [Concomitant]
  20. METOCLOPRAMIDE [Suspect]
     Indication: GASTROINTESTINAL DISORDER
     Dosage: 10 MG;QID;PO
     Route: 048
     Dates: start: 20031117, end: 20100114
  21. POTASSIUM CHLORIDE [Concomitant]
  22. FUROSEMIDE [Concomitant]
  23. MYCOPHENOLATE MOFETIL [Concomitant]
  24. TACROLIMUS [Concomitant]
  25. RENAGEL [Concomitant]
  26. NORVASC [Concomitant]
  27. MIRALAX [Concomitant]
  28. PROTONIX [Concomitant]
  29. SULFAMETHOXAZOLE [Concomitant]
  30. M.V.I. [Concomitant]
  31. MAGNESIUM OXIDE [Concomitant]
  32. MYCOPHENOLATE MOFETIL (CELLCEPT) [Concomitant]
  33. LORATADINE [Concomitant]
  34. CEPHALEXIN [Concomitant]
  35. PROPOXYPHENE HYDROCHLORIDE [Concomitant]
  36. SENSIPAR [Concomitant]
  37. ASPIRIN [Concomitant]
  38. PREVACID [Concomitant]
  39. COREG [Concomitant]
  40. METOLAZONE [Concomitant]
  41. PHOSLO [Concomitant]
  42. TRIMETHOPRIM [Concomitant]
  43. DOCUSATE [Concomitant]
  44. HUMALOG [Concomitant]
  45. CEFDINIR [Concomitant]

REACTIONS (9)
  - TARDIVE DYSKINESIA [None]
  - EXCESSIVE EYE BLINKING [None]
  - ECONOMIC PROBLEM [None]
  - ANXIETY [None]
  - MULTIPLE INJURIES [None]
  - EXTRAPYRAMIDAL DISORDER [None]
  - PROTRUSION TONGUE [None]
  - FAMILY STRESS [None]
  - PAIN [None]
